FAERS Safety Report 11529319 (Version 1)
Quarter: 2015Q3

REPORT INFORMATION
  Report Type: Spontaneous
  Country: US (occurrence: None)
  Receive Date: 20150918
  Receipt Date: 20150918
  Transmission Date: 20151125
  Serious: Yes (Other)
  Sender: FDA-Public Use
  Company Number: None

PATIENT
  Age: 41 Year
  Sex: Female
  Weight: 77.11 kg

DRUGS (5)
  1. MONTELUKAST SOD [Suspect]
     Active Substance: MONTELUKAST SODIUM
     Indication: MULTIPLE ALLERGIES
     Route: 048
     Dates: start: 20150902, end: 20150916
  2. ASPIRIN. [Concomitant]
     Active Substance: ASPIRIN
  3. OVALTINE [Concomitant]
  4. DAILY VITAMINS [Concomitant]
  5. VITAMIN SHAKES [Concomitant]

REACTIONS (3)
  - Insomnia [None]
  - Ocular hyperaemia [None]
  - Decreased appetite [None]

NARRATIVE: CASE EVENT DATE: 20150912
